FAERS Safety Report 5426050-4 (Version None)
Quarter: 2007Q3

REPORT INFORMATION
  Report Type: 
  Country: None (occurrence: None)
  Receive Date: 20070824
  Receipt Date: 20070824
  Transmission Date: 20080115
  Serious: Yes (Hospitalization)
  Sender: FDA-Public Use
  Company Number: None

PATIENT
  Sex: Female
  Weight: 80.5 kg

DRUGS (2)
  1. ISONIAZID [Suspect]
     Indication: ANTIBIOTIC PROPHYLAXIS
     Dosage: P.O. X 5 MONTHS PRIOR TO HOSPITALIZATION
     Route: 048
  2. ISONIAZID [Suspect]
     Indication: TUBERCULOSIS SKIN TEST POSITIVE
     Dosage: P.O. X 5 MONTHS PRIOR TO HOSPITALIZATION
     Route: 048

REACTIONS (9)
  - HEADACHE [None]
  - OPTIC DISC DISORDER [None]
  - OPTIC NEURITIS [None]
  - PAPILLOEDEMA [None]
  - PARAESTHESIA [None]
  - PHOTOPHOBIA [None]
  - VISUAL ACUITY REDUCED [None]
  - VISUAL DISTURBANCE [None]
  - VOMITING [None]
